FAERS Safety Report 6968977-8 (Version None)
Quarter: 2010Q3

REPORT INFORMATION
  Report Type: 
  Country: None (occurrence: None)
  Receive Date: 20100902
  Receipt Date: 20100823
  Transmission Date: 20110219
  Serious: Yes (Hospitalization)
  Sender: FDA-Public Use
  Company Number: IDA-00416

PATIENT
  Age: 2 Year
  Sex: Female
  Weight: 13 kg

DRUGS (3)
  1. PROPRANOLOL [Suspect]
     Dosage: 0.8 MG/KG, ORAL, EVERY 6 HOURS
     Route: 048
  2. LEVOTHYROXINE SODIUM [Suspect]
     Dosage: 40 TABLETS, ORAL, 1 TIME
     Route: 048
  3. IBUPROFEN [Suspect]
     Dosage: 10 MG/KG, ORAL, 1 TIME
     Route: 048

REACTIONS (1)
  - ADRENAL INSUFFICIENCY [None]
